APPROVED DRUG PRODUCT: METRONIDAZOLE
Active Ingredient: METRONIDAZOLE
Strength: 750MG
Dosage Form/Route: TABLET, EXTENDED RELEASE;ORAL
Application: A090222 | Product #001
Applicant: ALEMBIC PHARMACEUTICALS LTD
Approved: May 5, 2010 | RLD: No | RS: No | Type: DISCN